FAERS Safety Report 13815277 (Version 1)
Quarter: 2017Q3

REPORT INFORMATION
  Report Type: Spontaneous
  Country: US (occurrence: US)
  Receive Date: 20170729
  Receipt Date: 20170729
  Transmission Date: 20171127
  Serious: No
  Sender: FDA-Public Use
  Company Number: None

PATIENT
  Sex: Female
  Weight: 90 kg

DRUGS (8)
  1. BAYER LOW DOSE ASPIRIN [Concomitant]
  2. VITAMIN D3 [Concomitant]
     Active Substance: CHOLECALCIFEROL
  3. ROSUVASTATIN CALCIUM 20 MG [Suspect]
     Active Substance: ROSUVASTATIN CALCIUM
     Indication: LOW DENSITY LIPOPROTEIN
     Dosage: ?          QUANTITY:1 TABLET(S);?
     Route: 048
     Dates: start: 20170725, end: 20170726
  4. NEXIUM [Concomitant]
     Active Substance: ESOMEPRAZOLE MAGNESIUM
  5. ALIGN PROBIOTIC (BIFIDOBACTERIUM INFANTIS 35624) [Concomitant]
  6. AMLODIPINE BESYLATE. [Concomitant]
     Active Substance: AMLODIPINE BESYLATE
  7. ZOLPIDEM TARTRATE. [Concomitant]
     Active Substance: ZOLPIDEM TARTRATE
  8. CLONAZEPAM. [Concomitant]
     Active Substance: CLONAZEPAM

REACTIONS (11)
  - Frequent bowel movements [None]
  - Drug interaction [None]
  - Sleep disorder [None]
  - Pain [None]
  - Muscle injury [None]
  - Product label issue [None]
  - Coordination abnormal [None]
  - Muscle spasms [None]
  - Fatigue [None]
  - Headache [None]
  - Pollakiuria [None]

NARRATIVE: CASE EVENT DATE: 20170728
